FAERS Safety Report 13419469 (Version 1)
Quarter: 2017Q2

REPORT INFORMATION
  Report Type: Report from Study
  Country: None (occurrence: CA)
  Receive Date: 20170407
  Receipt Date: 20170407
  Transmission Date: 20170830
  Serious: Yes (Other)
  Sender: FDA-Public Use
  Company Number: CA-BIOVITRUM-2017CA0345

PATIENT
  Sex: Female

DRUGS (2)
  1. KINERET [Suspect]
     Active Substance: ANAKINRA
     Indication: CROWNED DENS SYNDROME
     Route: 058
     Dates: start: 20161118
  2. KINERET [Suspect]
     Active Substance: ANAKINRA
     Indication: PERIARTHRITIS CALCAREA

REACTIONS (2)
  - Visual impairment [Unknown]
  - Cerebrovascular accident [Unknown]
